FAERS Safety Report 9735958 (Version 1)
Quarter: 2013Q4

REPORT INFORMATION
  Report Type: Spontaneous
  Country: US (occurrence: None)
  Receive Date: 20131205
  Receipt Date: 20131205
  Transmission Date: 20140711
  Serious: Yes (Other)
  Sender: FDA-Public Use
  Company Number: None

PATIENT
  Age: 87 Year
  Sex: Male
  Weight: 100.25 kg

DRUGS (1)
  1. WARFARIN 5 MG TARO [Suspect]
     Dosage: MON-FRI
     Route: 048

REACTIONS (1)
  - International normalised ratio increased [None]
